FAERS Safety Report 9979564 (Version 2)
Quarter: 2014Q1

REPORT INFORMATION
  Report Type: Report from Study
  Country: US (occurrence: US)
  Receive Date: 20140306
  Receipt Date: 20140306
  Transmission Date: 20141002
  Serious: No
  Sender: FDA-Public Use
  Company Number: US-ABBVIE-13P-163-1062089-00

PATIENT
  Age: 48 Year
  Sex: Male
  Weight: 108.96 kg

DRUGS (6)
  1. HUMIRA [Suspect]
     Indication: COLITIS ULCERATIVE
     Dosage: LOADING DOSE
     Route: 058
     Dates: start: 201208, end: 201208
  2. HUMIRA [Suspect]
     Route: 058
     Dates: start: 2012, end: 2012
  3. HUMIRA [Suspect]
     Route: 058
     Dates: start: 2012, end: 2012
  4. HUMIRA [Suspect]
     Route: 058
     Dates: start: 2012, end: 201303
  5. HUMIRA [Suspect]
     Route: 058
     Dates: start: 20130313
  6. LISINOPRIL [Concomitant]
     Indication: HYPERTENSION
     Route: 048

REACTIONS (5)
  - Malaise [Recovering/Resolving]
  - Nasopharyngitis [Recovering/Resolving]
  - Drug dose omission [Unknown]
  - Sinusitis [Not Recovered/Not Resolved]
  - Arthralgia [Not Recovered/Not Resolved]
